FAERS Safety Report 15979694 (Version 1)
Quarter: 2019Q1

REPORT INFORMATION
  Report Type: Spontaneous
  Country: US (occurrence: US)
  Receive Date: 20190219
  Receipt Date: 20190219
  Transmission Date: 20190418
  Serious: No
  Sender: FDA-Public Use
  Company Number: PHEH2019US007350

PATIENT
  Sex: Female

DRUGS (3)
  1. DUREZOL [Suspect]
     Active Substance: DIFLUPREDNATE
     Indication: POSTOPERATIVE CARE
  2. DUREZOL [Suspect]
     Active Substance: DIFLUPREDNATE
     Indication: INFLAMMATION
     Route: 065
  3. DUREZOL [Suspect]
     Active Substance: DIFLUPREDNATE
     Indication: SWELLING

REACTIONS (4)
  - Tinnitus [Unknown]
  - Hypersensitivity [Unknown]
  - Hypertension [Unknown]
  - Peripheral swelling [Unknown]
